FAERS Safety Report 11938362 (Version 1)
Quarter: 2016Q1

REPORT INFORMATION
  Report Type: Spontaneous
  Country: US (occurrence: None)
  Receive Date: 20160121
  Receipt Date: 20160121
  Transmission Date: 20160526
  Serious: Yes (Hospitalization, Other)
  Sender: FDA-Public Use
  Company Number: None

PATIENT
  Age: 9 Year
  Sex: Female

DRUGS (3)
  1. CHILDRENS BENADRYL ALLERGY [Concomitant]
     Active Substance: DIPHENHYDRAMINE HYDROCHLORIDE
  2. ALBUTEROL 8.5 GR, 90 NCQ TEVA PHARMACEUTICALS [Suspect]
     Active Substance: ALBUTEROL
     Indication: ASTHMA
     Dosage: TWO INHALATIONS , 1X/WK
     Route: 048
     Dates: start: 20160118
  3. ALBUTEROL 8.5 GR, 90 NCQ TEVA PHARMACEUTICALS [Suspect]
     Active Substance: ALBUTEROL
     Indication: DYSPNOEA
     Dosage: TWO INHALATIONS , 1X/WK
     Route: 048
     Dates: start: 20160118

REACTIONS (9)
  - Tremor [None]
  - Fatigue [None]
  - Asthenia [None]
  - Movement disorder [None]
  - Myalgia [None]
  - Dizziness [None]
  - Abasia [None]
  - Muscle spasms [None]
  - Muscular weakness [None]

NARRATIVE: CASE EVENT DATE: 20160118
